FAERS Safety Report 8124909-0 (Version None)
Quarter: 2012Q1

REPORT INFORMATION
  Report Type: 
  Country: None (occurrence: None)
  Receive Date: 20120209
  Receipt Date: 20120203
  Transmission Date: 20120608
  Serious: Yes (Other)
  Sender: FDA-Public Use
  Company Number: US-PFIZER INC-2012029776

PATIENT
  Sex: Male
  Weight: 72.562 kg

DRUGS (1)
  1. NICOTROL [Suspect]
     Indication: SMOKING CESSATION THERAPY
     Dosage: 4 MG, 3X/DAY
     Route: 048
     Dates: start: 20020101

REACTIONS (2)
  - DENTAL CARIES [None]
  - GINGIVAL DISORDER [None]
